FAERS Safety Report 7337168-3 (Version None)
Quarter: 2011Q1

REPORT INFORMATION
  Report Type: 
  Country: None (occurrence: None)
  Receive Date: 20110308
  Receipt Date: 20110305
  Transmission Date: 20110831
  Serious: Yes (Other)
  Sender: FDA-Public Use
  Company Number: US-PFIZER INC-2011048434

PATIENT
  Sex: Female
  Weight: 87.53 kg

DRUGS (5)
  1. LORAZEPAM [Concomitant]
     Dosage: 0.05 MG, 2X/DAY
  2. BENICAR [Concomitant]
     Indication: HYPERTENSION
     Dosage: 20 MG, 1X/DAY
  3. SYNTHROID [Concomitant]
     Indication: HYPOTHYROIDISM
     Dosage: UNK
  4. CHANTIX [Suspect]
     Indication: SMOKING CESSATION THERAPY
     Dosage: 0.5 MG, DAILY
     Route: 048
     Dates: start: 20110303
  5. AMBIEN [Concomitant]
     Dosage: 10 MG ONCE AT NIGHT

REACTIONS (3)
  - ABDOMINAL PAIN UPPER [None]
  - DEPRESSION [None]
  - GASTRIC DISORDER [None]
